FAERS Safety Report 6499890-0 (Version None)
Quarter: 2009Q4

REPORT INFORMATION
  Report Type: 
  Country: None (occurrence: None)
  Receive Date: 20091214
  Receipt Date: 20091214
  Transmission Date: 20100525
  Serious: No
  Sender: FDA-Public Use
  Company Number: None

PATIENT
  Sex: Female

DRUGS (2)
  1. COLD REMEDY NASAL GEL SWABS [Suspect]
     Dosage: 2007 FLU SEASON
     Dates: start: 20070101
  2. COLD REMEDY NASAL GEL SWABS [Suspect]
     Dosage: 2007 FLU SEASON

REACTIONS (2)
  - AGEUSIA [None]
  - ANOSMIA [None]
